FAERS Safety Report 7765819-8 (Version None)
Quarter: 2011Q3

REPORT INFORMATION
  Report Type: 
  Country: None (occurrence: None)
  Receive Date: 20110921
  Receipt Date: 20110919
  Transmission Date: 20111222
  Serious: Yes (Life-Threatening, Hospitalization)
  Sender: FDA-Public Use
  Company Number: AU-B.I. PHARMACEUTICALS,INC./RIDGEFIELD-2011-AU-01006AU

PATIENT
  Sex: Male

DRUGS (7)
  1. NAPROSYN [Suspect]
  2. REFLEX [Concomitant]
     Dosage: 500 MG
  3. ZYLOPRIM [Concomitant]
     Dosage: 300 MG
  4. FLUTICASONE PROPIONATE/SALMETEROL [Concomitant]
  5. PERINDOPRIL ERBUMINE [Concomitant]
     Dosage: 5 MG
  6. SPIRIVA [Suspect]
  7. PRADAXA [Suspect]
     Indication: ATRIAL FIBRILLATION
     Dosage: 220 MG

REACTIONS (3)
  - RECTAL HAEMORRHAGE [None]
  - HAEMATEMESIS [None]
  - GASTROINTESTINAL HAEMORRHAGE [None]
